FAERS Safety Report 13708923 (Version 1)
Quarter: 2017Q2

REPORT INFORMATION
  Report Type: Spontaneous
  Country: US (occurrence: US)
  Receive Date: 20170630
  Receipt Date: 20170630
  Transmission Date: 20170830
  Serious: No
  Sender: FDA-Public Use
  Company Number: US-IPSEN BIOPHARMACEUTICALS, INC.-2016-01219

PATIENT
  Weight: 74.38 kg

DRUGS (1)
  1. SOMATULINE DEPOT [Suspect]
     Active Substance: LANREOTIDE ACETATE
     Indication: CARCINOID TUMOUR
     Dosage: 120 MG
     Route: 058
     Dates: start: 20150717

REACTIONS (6)
  - Injection site injury [Unknown]
  - Injection site injury [Unknown]
  - Injection site injury [Unknown]
  - Injection site injury [Unknown]
  - Injection site injury [Unknown]
  - Injection site injury [Unknown]

NARRATIVE: CASE EVENT DATE: 20150717
